FAERS Safety Report 19037325 (Version 1)
Quarter: 2021Q1

REPORT INFORMATION
  Report Type: Spontaneous
  Country: US (occurrence: US)
  Receive Date: 20210322
  Receipt Date: 20210322
  Transmission Date: 20210420
  Serious: No
  Sender: FDA-Public Use
  Company Number: US-ORGANON-2102USA001730

PATIENT
  Age: 26 Year
  Sex: Female
  Weight: 117.02 kg

DRUGS (4)
  1. NEXPLANON [Suspect]
     Active Substance: ETONOGESTREL
     Indication: CONTRACEPTION
     Dosage: 1 DOSAGE FORM, RIGHT ARM
     Route: 059
     Dates: start: 20171116, end: 20200820
  2. NEXPLANON [Suspect]
     Active Substance: ETONOGESTREL
     Indication: CONTRACEPTION
     Dosage: 68MG, ONCE, LEFT ARM
     Route: 059
     Dates: start: 20201028, end: 20210119
  3. NEXPLANON [Suspect]
     Active Substance: ETONOGESTREL
     Dosage: 1 DOSAGE FORM, RIGHT ARM
     Route: 059
     Dates: start: 20200820, end: 20200923
  4. NEXPLANON [Suspect]
     Active Substance: ETONOGESTREL
     Dosage: 1 DOSAGE FORM, LEFT ARM
     Route: 059
     Dates: start: 20210119

REACTIONS (8)
  - Device placement issue [Recovered/Resolved]
  - Implant site pain [Unknown]
  - Device placement issue [Unknown]
  - Implant site infection [Unknown]
  - Skin irritation [Unknown]
  - Device breakage [Recovered/Resolved]
  - Device kink [Recovered/Resolved]
  - Impaired healing [Unknown]

NARRATIVE: CASE EVENT DATE: 2020
